FAERS Safety Report 7771254-9 (Version None)
Quarter: 2011Q3

REPORT INFORMATION
  Report Type: 
  Country: None (occurrence: None)
  Receive Date: 20110920
  Receipt Date: 20110908
  Transmission Date: 20111222
  Serious: Yes (Death, Life-Threatening, Hospitalization)
  Sender: FDA-Public Use
  Company Number: 1037489

PATIENT
  Age: 55 Year
  Sex: Male
  Weight: 91 kg

DRUGS (2)
  1. VANCOMYCIN HYDROCHLORIDE [Suspect]
     Indication: CATHETER SITE INFECTION
     Dosage: 1000 MG, INTRAVENOUS
     Route: 042
     Dates: start: 20110720
  2. SODIUM CHLORIDE [Concomitant]

REACTIONS (4)
  - FEELING HOT [None]
  - CARDIO-RESPIRATORY ARREST [None]
  - FLUSHING [None]
  - PRURITUS [None]
